FAERS Safety Report 7091591-3 (Version None)
Quarter: 2010Q4

REPORT INFORMATION
  Report Type: 
  Country: None (occurrence: None)
  Receive Date: 20101109
  Receipt Date: 20101030
  Transmission Date: 20110411
  Serious: Yes (Other)
  Sender: FDA-Public Use
  Company Number: GXKR2010SI12325

PATIENT
  Sex: Female

DRUGS (4)
  1. LORAM (NGX) [Suspect]
     Indication: INSOMNIA
     Dosage: 1.25 MG, QD (IN THE EVENING)
     Route: 048
  2. LORAM (NGX) [Suspect]
     Dosage: 0.25 DF, QD
     Route: 048
  3. PERSEN FORTE (NGX) [Suspect]
     Indication: INSOMNIA
     Dosage: UNK
     Route: 048
  4. ORMIDOL [Concomitant]
     Dosage: 50 MG, QD
     Route: 065

REACTIONS (20)
  - AMNESIA [None]
  - ARRHYTHMIA [None]
  - ASTHENIA [None]
  - ATAXIA [None]
  - BALANCE DISORDER [None]
  - DECREASED APPETITE [None]
  - DRUG INEFFECTIVE [None]
  - DYSPEPSIA [None]
  - FAECES DISCOLOURED [None]
  - HALLUCINATION, AUDITORY [None]
  - HYPERHIDROSIS [None]
  - INSOMNIA [None]
  - MALAISE [None]
  - MEMORY IMPAIRMENT [None]
  - MUSCLE SPASMS [None]
  - NAUSEA [None]
  - NIGHTMARE [None]
  - TACHYCARDIA [None]
  - WEIGHT DECREASED [None]
  - WITHDRAWAL SYNDROME [None]
